FAERS Safety Report 24618319 (Version 2)
Quarter: 2024Q4

REPORT INFORMATION
  Report Type: Spontaneous
  Country: US (occurrence: US)
  Receive Date: 20241114
  Receipt Date: 20241126
  Transmission Date: 20250115
  Serious: Yes (Other)
  Sender: LABORATOIRES SERB
  Company Number: US-SERB S.A.S.-2165025

PATIENT
  Age: 4 Year
  Sex: Female

DRUGS (13)
  1. EDETATE CALCIUM DISODIUM [Suspect]
     Active Substance: EDETATE CALCIUM DISODIUM
     Indication: Metal poisoning
     Dates: start: 20230409, end: 20230414
  2. EDETATE CALCIUM DISODIUM [Suspect]
     Active Substance: EDETATE CALCIUM DISODIUM
     Dates: start: 20230608, end: 20230608
  3. FERROUS SULFATE [Concomitant]
     Active Substance: FERROUS SULFATE
     Dates: start: 20230521, end: 20230612
  4. ROCURONIUM [Concomitant]
     Active Substance: ROCURONIUM BROMIDE
  5. FENTANYL [Concomitant]
     Active Substance: FENTANYL
  6. KETAMINE HYDROCHLORIDE [Concomitant]
     Active Substance: KETAMINE HYDROCHLORIDE
  7. MIDAZOLAM [Concomitant]
     Active Substance: MIDAZOLAM
  8. LEVETIRACETAM [Concomitant]
     Active Substance: LEVETIRACETAM
  9. DIMERCAPROL [Suspect]
     Active Substance: DIMERCAPROL
     Dates: start: 202304, end: 202304
  10. SUCCIMER [Suspect]
     Active Substance: SUCCIMER
     Dates: start: 202306, end: 202306
  11. SUCCIMER [Suspect]
     Active Substance: SUCCIMER
     Dates: start: 202305, end: 202306
  12. SUCCIMER [Suspect]
     Active Substance: SUCCIMER
     Dates: start: 202304, end: 202305
  13. SUCCIMER [Suspect]
     Active Substance: SUCCIMER
     Dates: start: 202304, end: 202304

REACTIONS (4)
  - Generalised tonic-clonic seizure [Recovered/Resolved]
  - Product availability issue [Unknown]
  - Rebound effect [Recovered/Resolved]
  - Hypercalcaemia [Recovered/Resolved]

NARRATIVE: CASE EVENT DATE: 20230401
